FAERS Safety Report 12888260 (Version 2)
Quarter: 2016Q4

REPORT INFORMATION
  Report Type: Report from Study
  Country: JP (occurrence: JP)
  Receive Date: 20161027
  Receipt Date: 20161103
  Transmission Date: 20170207
  Serious: Yes (Death, Other)
  Sender: FDA-Public Use
  Company Number: JP-009507513-1610JPN012476

PATIENT
  Age: 61 Year
  Sex: Female
  Weight: 65 kg

DRUGS (6)
  1. TEICOPLANIN [Concomitant]
     Active Substance: TEICOPLANIN
     Indication: STAPHYLOCOCCAL SEPSIS
     Dosage: DIVIDED DOSE FREQUENCY UNKNOWN
     Route: 041
     Dates: start: 20160516, end: 20160525
  2. CUBICIN [Suspect]
     Active Substance: DAPTOMYCIN
     Indication: STAPHYLOCOCCAL SEPSIS
     Dosage: 9.3 MG/KG, DAILY
     Route: 041
     Dates: start: 20160526, end: 20160609
  3. SOLU-CORTEF [Concomitant]
     Active Substance: HYDROCORTISONE SODIUM SUCCINATE
     Indication: PROPHYLAXIS
     Dosage: 50 MG, DAILY
     Route: 051
     Dates: start: 20160518, end: 20160603
  4. ROPION [Concomitant]
     Active Substance: FLURBIPROFEN AXETIL
     Indication: PROPHYLAXIS
     Dosage: 50 MG, DAILY
     Route: 051
     Dates: start: 20160601, end: 20160619
  5. GENTACIN INJECTION 10 [Concomitant]
     Indication: STAPHYLOCOCCAL SEPSIS
     Dosage: DIVIDED DOSE FREQUENCY UNKNOWN
     Route: 041
     Dates: start: 20160523, end: 20160525
  6. HABEKACIN [Concomitant]
     Indication: STAPHYLOCOCCAL SEPSIS
     Dosage: 350 MG, DAILY
     Route: 051
     Dates: start: 20160526, end: 20160609

REACTIONS (4)
  - Overdose [Unknown]
  - Staphylococcal sepsis [Fatal]
  - Blood alkaline phosphatase abnormal [Not Recovered/Not Resolved]
  - Drug ineffective [Unknown]

NARRATIVE: CASE EVENT DATE: 2016
